FAERS Safety Report 4791665-3 (Version None)
Quarter: 2005Q4

REPORT INFORMATION
  Report Type: 
  Country: None (occurrence: None)
  Receive Date: 20051005
  Receipt Date: 20050915
  Transmission Date: 20060501
  Serious: Yes (Death)
  Sender: FDA-Public Use
  Company Number: US_0509121990

PATIENT
  Age: 24 Year
  Sex: Female

DRUGS (8)
  1. CAPASTAT SULFATE [Suspect]
     Indication: TUBERCULOSIS
  2. ISONIAZID [Concomitant]
  3. RIFAMPIN [Concomitant]
  4. ETHAMBUTOL [Concomitant]
  5. PYRAZINAMIDE [Concomitant]
  6. STREPTOMYCIN [Concomitant]
  7. KANAMYCIN [Concomitant]
  8. ETHIONAMIDE [Concomitant]

REACTIONS (7)
  - DRUG EXPOSURE DURING PREGNANCY [None]
  - GASTROINTESTINAL DISORDER [None]
  - MULTIPLE-DRUG RESISTANCE [None]
  - POST PROCEDURAL COMPLICATION [None]
  - PREGNANCY [None]
  - RESPIRATORY FAILURE [None]
  - THERAPY NON-RESPONDER [None]
